FAERS Safety Report 18915476 (Version 4)
Quarter: 2022Q3

REPORT INFORMATION
  Report Type: Spontaneous
  Country: JP (occurrence: JP)
  Receive Date: 20210219
  Receipt Date: 20220714
  Transmission Date: 20221027
  Serious: Yes (Hospitalization, Other)
  Sender: FDA-Public Use
  Company Number: JP-GSKNCCC-CASE-01145811_AE-40639

PATIENT

DRUGS (15)
  1. REQUIP [Suspect]
     Active Substance: ROPINIROLE HYDROCHLORIDE
     Dosage: 2 MG, QD, AFTER BREAKFAST
     Route: 048
     Dates: start: 20190401
  2. ROPINIROLE [Suspect]
     Active Substance: ROPINIROLE
     Dosage: 1 MG, BID, AFTER BREAKFAST AND DINNER, PULVERIZED
     Route: 048
  3. ISTRADEFYLLINE [Concomitant]
     Active Substance: ISTRADEFYLLINE
     Dosage: 20 MG, QD, AFTER BREAKFAST, PULVERIZED
  4. LANSOPRAZOLE-OD TABLETS [Concomitant]
     Dosage: 15 MG, QD, AFTER BREAKFAST
  5. CARBIDOPA\LEVODOPA [Concomitant]
     Active Substance: CARBIDOPA\LEVODOPA
     Dosage: 1 DF, BID, AFTER BREAKFAST AND DINNER, PULVERIZED
  6. LAC-B GRANULAR POWDER N [Concomitant]
     Dosage: 1 G, BID, AFTER BREAKFAST AND DINNER
  7. MEMANTINE HYDROCHLORIDE [Concomitant]
     Active Substance: MEMANTINE HYDROCHLORIDE
     Dosage: 5 MG, QD, AFTER DINNER, PULVERIZED
  8. MAGNESIUM OXIDE [Concomitant]
     Active Substance: MAGNESIUM OXIDE
     Dosage: 1.2 G, QD, AFTER LUNCH
  9. ISOSORBIDE DINITRATE TAPE [Concomitant]
     Dosage: 1 DF, QD, ON THE CHEST
     Route: 061
  10. WHITE PETROLATUM [Concomitant]
     Active Substance: PETROLATUM
     Dosage: UNK, TWICE OR THRICE DAILY ON THE BACK AREA
     Route: 061
  11. NERISONA OINTMENT [Concomitant]
     Dosage: UNK, TWICE OR THRICE DAILY ON THE ABDOMEN
     Route: 061
  12. DIPHENHYDRAMINE [Concomitant]
     Active Substance: DIPHENHYDRAMINE
     Dosage: UNK, TWICE OR THRICE DAILY ON THE ABDOMEN
     Route: 061
  13. MAGNESIUM OXIDE [Concomitant]
     Active Substance: MAGNESIUM OXIDE
     Dosage: 660 MG, QD, AFTER DINNER
  14. DICLOFENAC SODIUM SUPPOSITORY [Concomitant]
     Dosage: 25 MG, INSERT 1 PIECE INTO THE ANUS AT ONSET OF LOW BACK PAIN
     Route: 061
  15. LOXOPROFEN NA TAPE [Concomitant]
     Dosage: 2 DF, ON THE AFFECTED AREA

REACTIONS (7)
  - Cerebral infarction [Unknown]
  - Arterial thrombosis [Unknown]
  - Femur fracture [Unknown]
  - Visual impairment [Unknown]
  - Movement disorder [Unknown]
  - Dyslalia [Unknown]
  - Rib fracture [Unknown]

NARRATIVE: CASE EVENT DATE: 20210215
